FAERS Safety Report 9891814 (Version 3)
Quarter: 2015Q2

REPORT INFORMATION
  Report Type: Spontaneous
  Country: FR (occurrence: FR)
  Receive Date: 20140212
  Receipt Date: 20150407
  Transmission Date: 20150821
  Serious: Yes (Death, Life-Threatening, Hospitalization)
  Sender: FDA-Public Use
  Company Number: FR-PFIZER INC-2014038766

PATIENT
  Age: 75 Year
  Sex: Female

DRUGS (4)
  1. LASILIX [Concomitant]
     Active Substance: FUROSEMIDE
     Dosage: UNK
  2. CORDARONE [Suspect]
     Active Substance: AMIODARONE HYDROCHLORIDE
     Dosage: UNK
     Route: 048
     Dates: start: 200012, end: 20010121
  3. PLAVIX [Concomitant]
     Active Substance: CLOPIDOGREL BISULFATE
     Dosage: UNK
  4. SELOKEN [Suspect]
     Active Substance: METOPROLOL
     Dosage: UNK
     Route: 048
     Dates: start: 200012, end: 20010121

REACTIONS (6)
  - Renal failure [Recovered/Resolved]
  - Death [Fatal]
  - Hyperthyroidism [Recovered/Resolved with Sequelae]
  - Hepatic failure [Unknown]
  - Cardiogenic shock [Recovered/Resolved]
  - Disseminated intravascular coagulation [Unknown]

NARRATIVE: CASE EVENT DATE: 200101
